FAERS Safety Report 14107692 (Version 1)
Quarter: 2017Q4

REPORT INFORMATION
  Report Type: Spontaneous
  Country: US (occurrence: None)
  Receive Date: 20171019
  Receipt Date: 20171019
  Transmission Date: 20180321
  Serious: Yes (Other)
  Sender: FDA-Public Use
  Company Number: None

PATIENT
  Age: 72 Year
  Sex: Female
  Weight: 136.08 kg

DRUGS (8)
  1. PRAVASTATIN NA 20MG TAB [Suspect]
     Active Substance: PRAVASTATIN SODIUM
     Indication: BLOOD CHOLESTEROL INCREASED
     Route: 048
     Dates: start: 20170404
  2. GARLIQUE [Concomitant]
     Active Substance: GARLIC
  3. FLUOXETINE [Concomitant]
     Active Substance: FLUOXETINE HYDROCHLORIDE
  4. CRANBERRY. [Concomitant]
     Active Substance: CRANBERRY
  5. CPAP [Concomitant]
     Active Substance: DEVICE
  6. LOSARTIN [Concomitant]
     Active Substance: LOSARTAN
  7. MELATONIN [Concomitant]
     Active Substance: MELATONIN
  8. HYDROCHLOROTHIAZIDE. [Concomitant]
     Active Substance: HYDROCHLOROTHIAZIDE

REACTIONS (7)
  - Arthralgia [None]
  - Arthropathy [None]
  - Muscular weakness [None]
  - Gait disturbance [None]
  - Pain [None]
  - Mobility decreased [None]
  - Myalgia [None]

NARRATIVE: CASE EVENT DATE: 20170404
